FAERS Safety Report 5968588-7 (Version None)
Quarter: 2008Q4

REPORT INFORMATION
  Report Type: 
  Country: None (occurrence: None)
  Receive Date: 20081126
  Receipt Date: 20081120
  Transmission Date: 20090506
  Serious: Yes (Hospitalization, Other)
  Sender: FDA-Public Use
  Company Number: US-MERCK-0806USA01835

PATIENT
  Age: 67 Year
  Sex: Female
  Weight: 74 kg

DRUGS (1)
  1. FOSAMAX [Suspect]
     Indication: OSTEOPOROSIS
     Route: 048
     Dates: start: 20000101, end: 20070816

REACTIONS (9)
  - ACUTE SINUSITIS [None]
  - FATIGUE [None]
  - GASTROINTESTINAL DISORDER [None]
  - HYPERTENSION [None]
  - MALAISE [None]
  - NASOPHARYNGITIS [None]
  - OSTEONECROSIS [None]
  - PERIODONTAL DISEASE [None]
  - THYROID DISORDER [None]
